FAERS Safety Report 10735248 (Version 1)
Quarter: 2015Q1

REPORT INFORMATION
  Report Type: Spontaneous
  Country: US (occurrence: US)
  Receive Date: 20150125
  Receipt Date: 20150125
  Transmission Date: 20150721
  Serious: No
  Sender: FDA-Public Use
  Company Number: US-GLAXOSMITHKLINE-A1082211A

PATIENT

DRUGS (1)
  1. MEPRON [Suspect]
     Active Substance: ATOVAQUONE
     Indication: BABESIOSIS
     Dosage: 750 MG/5 ML
     Route: 065
     Dates: start: 20140330

REACTIONS (7)
  - Product quality issue [Unknown]
  - Diarrhoea [Recovered/Resolved]
  - Nervous system disorder [Unknown]
  - Diarrhoea [Recovered/Resolved]
  - Incorrect dose administered [Unknown]
  - Gout [Unknown]
  - Local swelling [Unknown]

NARRATIVE: CASE EVENT DATE: 20140730
